FAERS Safety Report 12126013 (Version 7)
Quarter: 2016Q4

REPORT INFORMATION
  Report Type: Report from Study
  Country: MX (occurrence: MX)
  Receive Date: 20160229
  Receipt Date: 20161104
  Transmission Date: 20170206
  Serious: Yes (Disabling, Other)
  Sender: FDA-Public Use
  Company Number: PHHY2015MX157644

PATIENT
  Age: 83 Year
  Sex: Female
  Weight: 46 kg

DRUGS (13)
  1. ACLASTA [Suspect]
     Active Substance: ZOLEDRONIC ACID
     Dosage: 1 DF (5 MG), Q12MO
     Route: 065
     Dates: start: 20151111
  2. CALADRYL (DIPHENHYDRAMINE HCL/CALAMINE/CAMPHOR) [Concomitant]
     Indication: PRODUCT USED FOR UNKNOWN INDICATION
     Dosage: UNK UNK, QID
     Route: 065
  3. RIVOTRIL [Concomitant]
     Active Substance: CLONAZEPAM
     Indication: PRODUCT USED FOR UNKNOWN INDICATION
     Dosage: UNK
     Route: 065
  4. CALADRYL (DIPHENHYDRAMINE HCL/CALAMINE/CAMPHOR) [Concomitant]
     Dosage: UNK, QD LIKE 20 DAYS AGO
     Route: 065
  5. OMEPRAZOLE. [Concomitant]
     Active Substance: OMEPRAZOLE
     Indication: PRODUCT USED FOR UNKNOWN INDICATION
     Route: 065
  6. ACLASTA [Suspect]
     Active Substance: ZOLEDRONIC ACID
     Indication: OSTEOPOROSIS
     Dosage: 1 DF (5MG/100 ML) , Q12MO
     Route: 065
     Dates: start: 201111
  7. LOPERAMIDE [Concomitant]
     Active Substance: LOPERAMIDE
     Indication: PRODUCT USED FOR UNKNOWN INDICATION
     Dosage: UNK
     Route: 065
  8. FLANAX CAPS [Concomitant]
     Active Substance: NAPROXEN
     Indication: PRODUCT USED FOR UNKNOWN INDICATION
     Dosage: UNK
     Route: 065
  9. EUTEBROL [Concomitant]
     Indication: PRODUCT USED FOR UNKNOWN INDICATION
     Dosage: UNK
     Route: 065
  10. VOLTAREN [Concomitant]
     Active Substance: DICLOFENAC SODIUM
     Indication: PRODUCT USED FOR UNKNOWN INDICATION
     Dosage: UNK
     Route: 065
  11. ALEVIAN DUO                        /06593801/ [Concomitant]
     Indication: PRODUCT USED FOR UNKNOWN INDICATION
     Dosage: UNK
     Route: 065
  12. SINUBERASE [Concomitant]
     Indication: PRODUCT USED FOR UNKNOWN INDICATION
     Dosage: UNK
     Route: 065
  13. CALCIUM [Concomitant]
     Active Substance: CALCIUM
     Indication: PRODUCT USED FOR UNKNOWN INDICATION
     Dosage: UNK
     Route: 065

REACTIONS (42)
  - Incontinence [Unknown]
  - Tendon rupture [Not Recovered/Not Resolved]
  - Headache [Unknown]
  - Urinary tract infection [Not Recovered/Not Resolved]
  - Influenza [Recovered/Resolved]
  - Hypokinesia [Recovered/Resolved]
  - Bone pain [Recovered/Resolved]
  - Vaginal discharge [Unknown]
  - Joint injury [Unknown]
  - Anxiety [Unknown]
  - Cataract [Unknown]
  - Visual impairment [Unknown]
  - Memory impairment [Unknown]
  - Burning sensation [Unknown]
  - Intellectual disability [Unknown]
  - Dizziness [Unknown]
  - Arthralgia [Unknown]
  - Pyrexia [Recovered/Resolved]
  - Somnambulism [Unknown]
  - Palpitations [Unknown]
  - Fall [Unknown]
  - Upper limb fracture [Unknown]
  - Dyspnoea [Recovered/Resolved]
  - Varicose vein [Unknown]
  - Gastritis [Unknown]
  - Pollakiuria [Unknown]
  - Ear discomfort [Unknown]
  - Chest pain [Unknown]
  - Joint dislocation [Unknown]
  - Pain [Recovered/Resolved]
  - Muscle spasms [Unknown]
  - Malaise [Unknown]
  - Excessive cerumen production [Unknown]
  - Hot flush [Unknown]
  - Peripheral swelling [Unknown]
  - Anal incontinence [Unknown]
  - Pruritus generalised [Unknown]
  - Musculoskeletal pain [Unknown]
  - Sleep disorder [Unknown]
  - Grip strength decreased [Unknown]
  - Micturition urgency [Unknown]
  - Pain in extremity [Unknown]

NARRATIVE: CASE EVENT DATE: 201509
